FAERS Safety Report 6973195 (Version 2)
Quarter: 2020Q2

REPORT INFORMATION
  Report Type: Spontaneous
  Country: DE (occurrence: DE)
  Receive Date: 20090409
  Receipt Date: 20200611
  Transmission Date: 20200714
  Serious: Yes (Other)
  Sender: FDA-Public Use
  Company Number: GXKR2009DE04088

PATIENT
  Age: 42 Year
  Sex: Male

DRUGS (13)
  1. COTRIMOXAZOLE [Suspect]
     Active Substance: SULFAMETHOXAZOLE\TRIMETHOPRIM
     Dosage: 960 MG, QD
     Route: 065
  2. DOXYCYCLINE. [Suspect]
     Active Substance: DOXYCYCLINE
     Indication: WHIPPLE^S DISEASE
     Route: 065
  3. STREPTOMYCIN [Suspect]
     Active Substance: STREPTOMYCIN SULFATE
     Dosage: UNK
     Route: 065
     Dates: start: 200702
  4. CEFTRIAXONE. [Suspect]
     Active Substance: CEFTRIAXONE
     Indication: WHIPPLE^S DISEASE
     Dosage: UNK
     Route: 065
     Dates: start: 200701
  5. CEFTRIAXONE. [Suspect]
     Active Substance: CEFTRIAXONE
     Dosage: UNK
     Route: 065
     Dates: start: 200612, end: 200702
  6. HYDROXYCHLOROQUINE [Suspect]
     Active Substance: HYDROXYCHLOROQUINE
     Indication: WHIPPLE^S DISEASE
     Dosage: UNK
     Route: 065
  7. PREDNISONE. [Suspect]
     Active Substance: PREDNISONE
     Dosage: UNK, DOSE REDUCED
     Route: 065
     Dates: start: 200703
  8. PREDNISONE. [Suspect]
     Active Substance: PREDNISONE
     Dosage: UNK, DOSE INCREASED
     Route: 065
     Dates: start: 200708
  9. STREPTOMYCIN [Suspect]
     Active Substance: STREPTOMYCIN SULFATE
     Indication: WHIPPLE^S DISEASE
     Dosage: UNK
     Route: 065
  10. PREDNISONE. [Suspect]
     Active Substance: PREDNISONE
     Indication: WHIPPLE^S DISEASE
     Dosage: UNK
     Route: 065
  11. COTRIMOXAZOLE [Suspect]
     Active Substance: SULFAMETHOXAZOLE\TRIMETHOPRIM
     Indication: WHIPPLE^S DISEASE
     Dosage: UNK
     Route: 065
     Dates: start: 200701, end: 200702
  12. HYDROXYCHLOROQUINE [Suspect]
     Active Substance: HYDROXYCHLOROQUINE
     Dosage: UNK
     Route: 065
     Dates: start: 200701, end: 200702
  13. DOXYCYCLINE. [Suspect]
     Active Substance: DOXYCYCLINE
     Dosage: UNK
     Route: 065
     Dates: start: 200701, end: 200702

REACTIONS (13)
  - Dermatitis [Unknown]
  - Erythema nodosum [Unknown]
  - Immune reconstitution inflammatory syndrome [Recovered/Resolved with Sequelae]
  - Skin mass [Not Recovered/Not Resolved]
  - Periorbital swelling [Recovering/Resolving]
  - Papilloma viral infection [Recovering/Resolving]
  - Nodule [Recovering/Resolving]
  - Mass [Recovering/Resolving]
  - Lymphoedema [Unknown]
  - Herpes dermatitis [Recovered/Resolved]
  - Periorbital oedema [Recovering/Resolving]
  - Panniculitis [Unknown]
  - Herpes simplex [Recovered/Resolved]

NARRATIVE: CASE EVENT DATE: 200701
